FAERS Safety Report 4638773-5 (Version None)
Quarter: 2005Q2

REPORT INFORMATION
  Report Type: 
  Country: None (occurrence: None)
  Receive Date: 20050419
  Receipt Date: 20050407
  Transmission Date: 20051028
  Serious: Yes (Hospitalization)
  Sender: FDA-Public Use
  Company Number: GB-BRISTOL-MYERS SQUIBB COMPANY-12927810

PATIENT
  Age: 56 Year
  Sex: Female

DRUGS (3)
  1. VIDEX [Suspect]
     Indication: HIV INFECTION
     Route: 048
     Dates: start: 20040801
  2. TENOFOVIR [Suspect]
     Indication: HIV INFECTION
     Dates: start: 20040801
  3. REYATAZ [Concomitant]
     Indication: HIV INFECTION
     Route: 048
     Dates: start: 20040801

REACTIONS (1)
  - PANCREATITIS [None]
